FAERS Safety Report 11534423 (Version 3)
Quarter: 2015Q4

REPORT INFORMATION
  Report Type: Report from Study
  Country: AU (occurrence: AU)
  Receive Date: 20150922
  Receipt Date: 20151002
  Transmission Date: 20160304
  Serious: Yes (Other)
  Sender: FDA-Public Use
  Company Number: PHHY2015AU111007

PATIENT
  Sex: Male

DRUGS (3)
  1. CLOPINE [Concomitant]
     Active Substance: CLOZAPINE
     Indication: PRODUCT USED FOR UNKNOWN INDICATION
     Route: 065
  2. CLOZARIL [Suspect]
     Active Substance: CLOZAPINE
     Indication: SCHIZOPHRENIA
     Dosage: 400 MG, QHS  (NOCTE)
     Route: 048
     Dates: start: 201501
  3. CLOZARIL [Suspect]
     Active Substance: CLOZAPINE
     Dosage: 400 OT, UNK
     Route: 048
     Dates: start: 20150219

REACTIONS (4)
  - Haematemesis [Unknown]
  - Melaena [Unknown]
  - Gastrooesophageal reflux disease [Unknown]
  - Abdominal pain upper [Unknown]
